FAERS Safety Report 11403598 (Version 1)
Quarter: 2015Q3

REPORT INFORMATION
  Report Type: Spontaneous
  Country: BR (occurrence: BR)
  Receive Date: 20150821
  Receipt Date: 20150821
  Transmission Date: 20151125
  Serious: Yes (Other)
  Sender: FDA-Public Use
  Company Number: BR-JNJFOC-20150709017

PATIENT
  Age: 72 Year
  Sex: Male
  Weight: 96 kg

DRUGS (6)
  1. XARELTO [Suspect]
     Active Substance: RIVAROXABAN
     Indication: ARRHYTHMIA
     Route: 048
  2. XARELTO [Suspect]
     Active Substance: RIVAROXABAN
     Indication: ARRHYTHMIA
     Route: 048
     Dates: start: 20150428
  3. AMLODIPINE [Concomitant]
     Active Substance: AMLODIPINE BESYLATE
     Route: 065
  4. XARELTO [Suspect]
     Active Substance: RIVAROXABAN
     Indication: ARRHYTHMIA
     Route: 048
  5. SOTALOL. [Concomitant]
     Active Substance: SOTALOL
     Route: 065
  6. ENALAPRIL [Concomitant]
     Active Substance: ENALAPRIL
     Indication: HYPERTENSION
     Route: 048
     Dates: start: 20150617

REACTIONS (9)
  - Peripheral swelling [Recovering/Resolving]
  - Contusion [Recovering/Resolving]
  - Blood urine present [Recovered/Resolved]
  - Lymphadenitis bacterial [Recovering/Resolving]
  - Off label use [Unknown]
  - Skin discolouration [Not Recovered/Not Resolved]
  - Chromaturia [Recovered/Resolved]
  - Thrombosis [Recovering/Resolving]
  - Erythema [Recovering/Resolving]

NARRATIVE: CASE EVENT DATE: 20150607
